FAERS Safety Report 4991089-X (Version None)
Quarter: 2006Q2

REPORT INFORMATION
  Report Type: 
  Country: None (occurrence: None)
  Receive Date: 20060428
  Receipt Date: 20060421
  Transmission Date: 20061013
  Serious: Yes (Hospitalization, Other)
  Sender: FDA-Public Use
  Company Number: 200210896BCA

PATIENT
  Age: 70 Year
  Sex: Male

DRUGS (17)
  1. AVELOX [Suspect]
     Indication: PNEUMONIA
     Dosage: 400 MG QD ORAL
     Route: 048
     Dates: start: 20020323, end: 20020401
  2. WARFARIN SODIUM [Suspect]
     Indication: ATRIAL FIBRILLATION
     Dosage: SEE IMAGE
     Route: 048
     Dates: end: 20020401
  3. WARFARIN SODIUM [Suspect]
     Indication: ATRIAL FIBRILLATION
     Dosage: SEE IMAGE
     Route: 048
     Dates: start: 20020404, end: 20020405
  4. WARFARIN SODIUM [Suspect]
     Indication: ATRIAL FIBRILLATION
     Dosage: SEE IMAGE
     Route: 048
     Dates: start: 20020406, end: 20020407
  5. WARFARIN SODIUM [Suspect]
     Indication: ATRIAL FIBRILLATION
     Dosage: SEE IMAGE
     Route: 048
     Dates: start: 20020402
  6. WARFARIN SODIUM [Suspect]
     Indication: ATRIAL FIBRILLATION
     Dosage: SEE IMAGE
     Route: 048
     Dates: start: 20020403
  7. WARFARIN SODIUM [Suspect]
     Indication: ATRIAL FIBRILLATION
     Dosage: SEE IMAGE
     Route: 048
     Dates: start: 20020408
  8. CARVEDILOL [Concomitant]
  9. DIGOXIN [Concomitant]
  10. SPIRONOLACTONE [Concomitant]
  11. ATORVASTATIN CALCIUM [Concomitant]
  12. VITAMIN E [Concomitant]
  13. FUROSEMIDE [Concomitant]
  14. NYSTATIN [Concomitant]
  15. ENALAPRIL MALEATE [Concomitant]
  16. ZOPICLONE [Concomitant]
  17. METOLAZONE [Concomitant]

REACTIONS (11)
  - ANOREXIA [None]
  - BLEEDING TIME SHORTENED [None]
  - CHILLS [None]
  - DEHYDRATION [None]
  - DIARRHOEA [None]
  - DRUG INTERACTION [None]
  - HAEMOGLOBIN DECREASED [None]
  - INTERNATIONAL NORMALISED RATIO INCREASED [None]
  - PNEUMONIA [None]
  - RENAL FAILURE [None]
  - VOMITING [None]
